FAERS Safety Report 6507652-0 (Version None)
Quarter: 2009Q4

REPORT INFORMATION
  Report Type: 
  Country: None (occurrence: None)
  Receive Date: 20091216
  Receipt Date: 20091201
  Transmission Date: 20100525
  Serious: Yes (Other)
  Sender: FDA-Public Use
  Company Number: IDA-00300

PATIENT
  Age: 43 Year
  Sex: Male

DRUGS (1)
  1. PROPRANOLOL [Suspect]
     Indication: ANGINA PECTORIS
     Dosage: DAILY 20 MG QID

REACTIONS (1)
  - SCLEROSING ENCAPSULATING PERITONITIS [None]
